FAERS Safety Report 6274975-2 (Version None)
Quarter: 2009Q3

REPORT INFORMATION
  Report Type: 
  Country: None (occurrence: None)
  Receive Date: 20090717
  Receipt Date: 20090706
  Transmission Date: 20100115
  Serious: Yes (Hospitalization)
  Sender: FDA-Public Use
  Company Number: 1000007490

PATIENT
  Age: 46 Year
  Sex: Female

DRUGS (3)
  1. ESCITALOPRAM [Suspect]
     Dosage: ORAL
     Route: 048
     Dates: start: 20090510, end: 20090531
  2. VERATRAN [Suspect]
     Dosage: ORAL
     Route: 048
     Dates: start: 20090510, end: 20090531
  3. STILNOX [Suspect]
     Dosage: ORAL
     Route: 048
     Dates: start: 20090510, end: 20090531

REACTIONS (2)
  - DYSPNOEA [None]
  - URTICARIA [None]
